FAERS Safety Report 11699169 (Version 2)
Quarter: 2015Q4

REPORT INFORMATION
  Report Type: Spontaneous
  Country: PT (occurrence: PT)
  Receive Date: 20151104
  Receipt Date: 20151104
  Transmission Date: 20160304
  Serious: No
  Sender: FDA-Public Use
  Company Number: PT-ANTARES PHARMA, INC.-2015-LIT-ME-0097

PATIENT
  Age: 50 Year
  Sex: Male

DRUGS (1)
  1. METHOTREXATE [Suspect]
     Active Substance: METHOTREXATE
     Indication: MYOPATHY

REACTIONS (5)
  - No therapeutic response [None]
  - Disease recurrence [None]
  - Off label use [None]
  - Immune-mediated necrotising myopathy [None]
  - Respiratory failure [None]
